FAERS Safety Report 5026144-1 (Version None)
Quarter: 2006Q2

REPORT INFORMATION
  Report Type: 
  Country: None (occurrence: None)
  Receive Date: 20060608
  Receipt Date: 20020103
  Transmission Date: 20061013
  Serious: No
  Sender: FDA-Public Use
  Company Number: 2002-01-0491

PATIENT
  Sex: Male

DRUGS (4)
  1. ETHYOL [Suspect]
     Indication: ADVERSE DRUG REACTION
     Dosage: INTRAVENOUS
     Route: 042
     Dates: start: 20010122
  2. TAXOL [Concomitant]
  3. CARBOPLATIN [Concomitant]
  4. RADIATION THERAPY [Concomitant]

REACTIONS (3)
  - FEELING ABNORMAL [None]
  - HYPERTENSION [None]
  - MUSCULOSKELETAL DISCOMFORT [None]
